FAERS Safety Report 5757443-3 (Version None)
Quarter: 2008Q2

REPORT INFORMATION
  Report Type: 
  Country: None (occurrence: None)
  Receive Date: 20080603
  Receipt Date: 20080527
  Transmission Date: 20081010
  Serious: No
  Sender: FDA-Public Use
  Company Number: US-BOEHRINGER INGELHEIM GMBH, GERMANY-2008-BP-05775BP

PATIENT
  Sex: Male

DRUGS (6)
  1. ZANTAC 150 [Suspect]
     Indication: DYSPEPSIA
     Route: 048
  2. ZANTAC 150 [Suspect]
     Indication: GASTROOESOPHAGEAL REFLUX DISEASE
  3. METAMUCIL [Concomitant]
  4. MULTI-VITAMIN [Concomitant]
  5. VITAMIN B-12 [Concomitant]
  6. ENERGY DRINKS [Concomitant]

REACTIONS (1)
  - URINE AMPHETAMINE POSITIVE [None]
